FAERS Safety Report 8569503 (Version 2)
Quarter: 2014Q1

REPORT INFORMATION
  Report Type: Spontaneous
  Country: US (occurrence: None)
  Receive Date: 20120323
  Receipt Date: 20130305
  Transmission Date: 20141002
  Serious: Yes (Hospitalization, Other)
  Sender: FDA-Public Use
  Company Number: 163-21880-11113332

PATIENT
  Age: 76 Year
  Sex: Female
  Weight: 55.79 kg

DRUGS (1)
  1. REVLIMID [Suspect]
     Indication: PLASMA CELL MYELOMA
     Dosage: 10 MG, 1 IN 1 D, PO, 15 MG, QD X 21 DAYS, PO
     Route: 048
     Dates: start: 20110117, end: 20111114

REACTIONS (3)
  - Pneumonia [None]
  - Neutrophil count decreased [None]
  - Bronchitis [None]
